FAERS Safety Report 8422889 (Version 2)
Quarter: 2014Q1

REPORT INFORMATION
  Report Type: Report from Study
  Country: FR (occurrence: FR)
  Receive Date: 20120223
  Receipt Date: 20140221
  Transmission Date: 20141002
  Serious: Yes (Hospitalization, Other)
  Sender: FDA-Public Use
  Company Number: FR-GLAXOSMITHKLINE-B0781894A

PATIENT
  Age: 44 Year
  Sex: Female
  Weight: 57 kg

DRUGS (2)
  1. REVOLADE [Suspect]
     Indication: IMMUNE THROMBOCYTOPENIC PURPURA
     Dosage: 50MG PER DAY
     Route: 048
     Dates: start: 20110221, end: 201108
  2. NEOMERCAZOLE [Concomitant]
     Indication: THYROIDITIS SUBACUTE
     Dosage: 40MG PER DAY
     Dates: start: 20110715, end: 201108

REACTIONS (1)
  - Hepatocellular injury [Recovered/Resolved]
